FAERS Safety Report 23767039 (Version 1)
Quarter: 2024Q2

REPORT INFORMATION
  Report Type: Spontaneous
  Country: CN (occurrence: CN)
  Receive Date: 20240422
  Receipt Date: 20240422
  Transmission Date: 20240717
  Serious: Yes (Hospitalization)
  Sender: FDA-Public Use
  Company Number: CN-SA-SAC20240418000222

PATIENT
  Age: 35 Year
  Sex: Male
  Weight: 81 kg

DRUGS (2)
  1. AUBAGIO [Suspect]
     Active Substance: TERIFLUNOMIDE
     Indication: Multiple sclerosis
     Dosage: 1 DF, QD
     Route: 048
     Dates: start: 202304, end: 20240319
  2. DALFAMPRIDINE [Concomitant]
     Active Substance: DALFAMPRIDINE
     Indication: Multiple sclerosis
     Dosage: 1 DF, Q12H
     Route: 048
     Dates: start: 2023, end: 20231210

REACTIONS (1)
  - Gait disturbance [Not Recovered/Not Resolved]

NARRATIVE: CASE EVENT DATE: 20231110
